FAERS Safety Report 8935073 (Version 1)
Quarter: 2012Q4

REPORT INFORMATION
  Report Type: 
  Country: US (occurrence: US)
  Receive Date: 20121129
  Receipt Date: 20121129
  Transmission Date: 20130627
  Serious: No
  Sender: FDA-Public Use
  Company Number: US-ASTRAZENECA-2012SE87123

PATIENT
  Sex: Female

DRUGS (10)
  1. PULMICORT FLEXHALER [Suspect]
     Dosage: 1 PUFF DAILY
     Route: 055
  2. PLAVIX GENERIC CLOPIDOGREL [Concomitant]
     Indication: STENT PLACEMENT
  3. BENECAR [Concomitant]
     Indication: HYPERTENSION
  4. BENECAR [Concomitant]
     Indication: ILL-DEFINED DISORDER
  5. LATANOPROST [Concomitant]
     Indication: GLAUCOMA
  6. NAPROXYN [Concomitant]
     Indication: INFLAMMATION
  7. GENERIC COLACE SIMPLY RIGHT [Concomitant]
     Indication: FUNCTIONAL GASTROINTESTINAL DISORDER
  8. OPTIVITAMIN WITH GLUTEN [Concomitant]
     Indication: EYE DISORDER
  9. MEGA RED [Concomitant]
  10. PROBIOTIC [Concomitant]

REACTIONS (5)
  - Dysgeusia [Unknown]
  - Lip disorder [Unknown]
  - Flushing [Unknown]
  - Eye disorder [Unknown]
  - Adverse event [Unknown]
